FAERS Safety Report 6847668-8 (Version None)
Quarter: 2010Q3

REPORT INFORMATION
  Report Type: 
  Country: None (occurrence: None)
  Receive Date: 20100716
  Receipt Date: 20100707
  Transmission Date: 20110219
  Serious: Yes (Other)
  Sender: FDA-Public Use
  Company Number: CA-JNJFOC-20100702647

PATIENT
  Sex: Female
  Weight: 50 kg

DRUGS (5)
  1. REMICADE [Suspect]
     Indication: CROHN'S DISEASE
     Dosage: 10TH INFUSION
     Route: 042
  2. REMICADE [Suspect]
     Dosage: 9 INFUSIONS
     Route: 042
  3. VITAMIN B-12 [Concomitant]
  4. CELEBREX [Concomitant]
  5. IMURAN [Concomitant]

REACTIONS (1)
  - SYSTEMIC LUPUS ERYTHEMATOSUS [None]
